FAERS Safety Report 24786480 (Version 1)
Quarter: 2024Q4

REPORT INFORMATION
  Report Type: Spontaneous
  Country: US (occurrence: US)
  Receive Date: 20241230
  Receipt Date: 20241230
  Transmission Date: 20250114
  Serious: No
  Sender: Unknown Manufacturer
  Company Number: US-AIMMUNE THERAPEUTICS, INC.-2024AIMT00217

PATIENT
  Age: 4 Year
  Sex: Female

DRUGS (5)
  1. PALFORZIA [Suspect]
     Active Substance: PEANUT
     Indication: Food allergy
     Dosage: IDE (0.5-6MG), ONCE
     Dates: start: 20240126, end: 20240126
  2. PALFORZIA [Suspect]
     Active Substance: PEANUT
     Dosage: 6 MG, 1X/DAY
     Dates: start: 20240209, end: 20240209
  3. PALFORZIA [Suspect]
     Active Substance: PEANUT
     Dosage: 6 MG, ONCE, LAST DOSE PRIOR TO EVENTS
     Dates: start: 20240209, end: 20240209
  4. PALFORZIA [Suspect]
     Active Substance: PEANUT
     Dosage: 3 MG, 1X/DAY, DOSE DECREASED
     Dates: start: 20240210, end: 20240211
  5. EPIPEN [Concomitant]
     Active Substance: EPINEPHRINE
     Indication: Product used for unknown indication

REACTIONS (3)
  - Eye pruritus [Recovered/Resolved]
  - Rhinorrhoea [Recovered/Resolved]
  - Vomiting [Recovered/Resolved]

NARRATIVE: CASE EVENT DATE: 20240209
